FAERS Safety Report 4348643-8 (Version None)
Quarter: 2004Q2

REPORT INFORMATION
  Report Type: 
  Country: None (occurrence: None)
  Receive Date: 20040423
  Receipt Date: 20040407
  Transmission Date: 20050107
  Serious: Yes (Death, Hospitalization)
  Sender: FDA-Public Use
  Company Number: 2004AP01050

PATIENT
  Age: 64 Year
  Sex: Male

DRUGS (13)
  1. IRESSA [Suspect]
     Indication: LARGE CELL CARCINOMA OF THE RESPIRATORY TRACT STAGE UNSPECIFIED
     Dosage: 250 MG DAILY PO
     Route: 048
     Dates: start: 20031112, end: 20040212
  2. IRESSA [Suspect]
     Indication: NON-SMALL CELL LUNG CANCER
     Dosage: 250 MG DAILY PO
     Route: 048
     Dates: start: 20031112, end: 20040212
  3. FERROMIA [Concomitant]
  4. GASTER D [Concomitant]
  5. CLARITHROMYCIN [Concomitant]
  6. CRAVIT [Concomitant]
  7. MUCODYNE [Concomitant]
  8. SWORD [Concomitant]
  9. PREDNISOLONE [Concomitant]
  10. CISPLATIN [Concomitant]
  11. PACLITAXEL [Concomitant]
  12. VINORELBINE TARTRATE [Concomitant]
  13. RADIATION THERAPY [Concomitant]

REACTIONS (10)
  - ACUTE RESPIRATORY FAILURE [None]
  - ANGIOPATHY [None]
  - DIARRHOEA [None]
  - HYPOXIA [None]
  - NEOPLASM GROWTH ACCELERATED [None]
  - PLEURAL EFFUSION [None]
  - PULMONARY FIBROSIS [None]
  - RADIATION PNEUMONITIS [None]
  - RALES [None]
  - RESPIRATORY FAILURE [None]
